FAERS Safety Report 8357896-0 (Version None)
Quarter: 2012Q2

REPORT INFORMATION
  Report Type: 
  Country: None (occurrence: None)
  Receive Date: 20120514
  Receipt Date: 20120508
  Transmission Date: 20120825
  Serious: Yes (Hospitalization)
  Sender: FDA-Public Use
  Company Number: US-CELGENEUS-163-21880-12032323

PATIENT
  Sex: Male

DRUGS (6)
  1. REVLIMID [Suspect]
     Route: 048
     Dates: start: 20110401
  2. ROCEPHIN [Concomitant]
     Indication: URINARY TRACT INFECTION
     Route: 065
  3. REVLIMID [Suspect]
     Dosage: 15 MILLIGRAM
     Route: 048
     Dates: start: 20110412
  4. FLUID [Concomitant]
     Route: 041
  5. HYDROCODONE BITARTRATE + ACETAMINOPHEN [Concomitant]
     Route: 065
  6. VERAPAMIL [Concomitant]
     Route: 065

REACTIONS (4)
  - BLOOD BILIRUBIN INCREASED [None]
  - THROMBOCYTOPENIA [None]
  - CALCULUS URINARY [None]
  - NEPHROLITHIASIS [None]
